FAERS Safety Report 8282640-5 (Version None)
Quarter: 2012Q2

REPORT INFORMATION
  Report Type: 
  Country: None (occurrence: None)
  Receive Date: 20120413
  Receipt Date: 20120410
  Transmission Date: 20120825
  Serious: No
  Sender: FDA-Public Use
  Company Number: US-PFIZER INC-2012087541

PATIENT
  Sex: Male
  Weight: 88.435 kg

DRUGS (2)
  1. ALPRAZOLAM [Suspect]
     Indication: ANXIETY
  2. ALPRAZOLAM [Suspect]
     Indication: PANIC DISORDER
     Dosage: 6 MG, DAILY
     Route: 048
     Dates: start: 20120201

REACTIONS (1)
  - DRUG INEFFECTIVE [None]
